APPROVED DRUG PRODUCT: LACOSAMIDE
Active Ingredient: LACOSAMIDE
Strength: 10MG/ML
Dosage Form/Route: SOLUTION;ORAL
Application: A204839 | Product #001
Applicant: AMNEAL PHARMACEUTICALS
Approved: Mar 27, 2024 | RLD: No | RS: No | Type: DISCN